FAERS Safety Report 5818400-1 (Version None)
Quarter: 2008Q3

REPORT INFORMATION
  Report Type: 
  Country: None (occurrence: None)
  Receive Date: 20080722
  Receipt Date: 20080714
  Transmission Date: 20090109
  Serious: Yes (Other)
  Sender: FDA-Public Use
  Company Number: GB-PFIZER INC-2008059575

PATIENT
  Sex: Female

DRUGS (1)
  1. SALAZOPYRIN EN TABLETS [Suspect]
     Indication: RHEUMATOID ARTHRITIS
     Route: 048

REACTIONS (3)
  - ILEOSTOMY [None]
  - MEDICATION RESIDUE [None]
  - SURGERY [None]
